FAERS Safety Report 23311036 (Version 1)
Quarter: 2023Q4

REPORT INFORMATION
  Report Type: Report from Study
  Country: US (occurrence: US)
  Receive Date: 20231218
  Receipt Date: 20231218
  Transmission Date: 20240110
  Serious: Yes (Other)
  Sender: FDA-Public Use
  Company Number: US-ABBVIE-5495719

PATIENT
  Sex: Male

DRUGS (2)
  1. SKYRIZI [Suspect]
     Active Substance: RISANKIZUMAB-RZAA
     Indication: Crohn^s disease
     Dosage: THERAPY END DATE 2023
     Route: 058
     Dates: start: 20231010
  2. SKYRIZI [Suspect]
     Active Substance: RISANKIZUMAB-RZAA
     Indication: Crohn^s disease
     Dosage: THERAPY START DATE 2023
     Route: 058

REACTIONS (13)
  - Infusion site discomfort [Unknown]
  - Pain in extremity [Recovering/Resolving]
  - Liver function test abnormal [Not Recovered/Not Resolved]
  - Peripheral swelling [Recovering/Resolving]
  - Joint swelling [Not Recovered/Not Resolved]
  - Joint swelling [Unknown]
  - Laboratory test abnormal [Not Recovered/Not Resolved]
  - Skin discolouration [Unknown]
  - Infusion site reaction [Recovered/Resolved]
  - Erythema [Unknown]
  - Joint range of motion decreased [Unknown]
  - Arthralgia [Not Recovered/Not Resolved]
  - Pain in extremity [Unknown]

NARRATIVE: CASE EVENT DATE: 20230101
